FAERS Safety Report 15811319 (Version 4)
Quarter: 2023Q2

REPORT INFORMATION
  Report Type: Spontaneous
  Country: AT (occurrence: AT)
  Receive Date: 20190111
  Receipt Date: 20230426
  Transmission Date: 20230722
  Serious: Yes (Other)
  Sender: FDA-Public Use
  Company Number: AT-002147023-PHHY2019AT000597

PATIENT
  Age: 49 Year
  Sex: Female

DRUGS (7)
  1. ICLUSIG [Suspect]
     Active Substance: PONATINIB
     Indication: Chronic myeloid leukaemia
     Dosage: UNK
     Route: 048
     Dates: start: 20160922, end: 20160927
  2. BOSUTINIB [Suspect]
     Active Substance: BOSUTINIB
     Indication: Chronic myeloid leukaemia
     Dosage: UNK
     Route: 065
     Dates: start: 20161027
  3. NILOTINIB [Suspect]
     Active Substance: NILOTINIB
     Indication: Chronic myeloid leukaemia
     Dosage: 300 MILLIGRAM, QD
     Route: 065
     Dates: start: 20170105, end: 20170113
  4. GLIVEC [Suspect]
     Active Substance: IMATINIB MESYLATE
     Indication: Chronic myeloid leukaemia
     Dosage: 400 MILLIGRAM, QD
     Route: 065
     Dates: start: 20160219, end: 20160310
  5. DASATINIB [Suspect]
     Active Substance: DASATINIB
     Indication: Chronic myeloid leukaemia
     Dosage: 50 MILLIGRAM, 3/WEEK
     Route: 065
     Dates: start: 20160409, end: 201609
  6. DASATINIB [Suspect]
     Active Substance: DASATINIB
     Dosage: UNK
     Route: 065
  7. ONDANSETRON [Suspect]
     Active Substance: ONDANSETRON
     Indication: Nausea
     Dosage: UNK
     Route: 065

REACTIONS (8)
  - Capillary leak syndrome [Unknown]
  - Cytogenetic analysis abnormal [Unknown]
  - Myelodysplastic syndrome [Unknown]
  - Pancytopenia [Not Recovered/Not Resolved]
  - Cytopenia [Unknown]
  - Skin toxicity [Unknown]
  - Nausea [Unknown]
  - Therapeutic response decreased [Unknown]
